FAERS Safety Report 7726063-3 (Version None)
Quarter: 2011Q3

REPORT INFORMATION
  Report Type: 
  Country: None (occurrence: None)
  Receive Date: 20110902
  Receipt Date: 20110825
  Transmission Date: 20111222
  Serious: Yes (Other)
  Sender: FDA-Public Use
  Company Number: JP-EISAI INC-E7389-01437-SPO-JP

PATIENT
  Sex: Female
  Weight: 65 kg

DRUGS (1)
  1. HALAVEN [Suspect]
     Indication: BREAST CANCER RECURRENT
     Dosage: UNKNOWN
     Route: 042
     Dates: start: 20110818, end: 20110825

REACTIONS (2)
  - LEUKOPENIA [None]
  - NEUTROPENIA [None]
